FAERS Safety Report 19819784 (Version 2)
Quarter: 2022Q1

REPORT INFORMATION
  Report Type: Report from Study
  Country: US (occurrence: US)
  Receive Date: 20210913
  Receipt Date: 20220309
  Transmission Date: 20220423
  Serious: No
  Sender: FDA-Public Use
  Company Number: US-NOVARTISTESTPH-NVSC2021US206105

PATIENT
  Sex: Female

DRUGS (4)
  1. ENTRESTO [Suspect]
     Active Substance: SACUBITRIL\VALSARTAN
     Indication: Product used for unknown indication
     Dosage: UNK UNK, BID
     Route: 048
     Dates: start: 202108
  2. LASIX [Suspect]
     Active Substance: FUROSEMIDE
     Indication: Product used for unknown indication
     Dosage: UNK, QD (3/7/22)
     Route: 065
  3. LASIX [Suspect]
     Active Substance: FUROSEMIDE
     Dosage: UNK, QOD (EVERY OTHER DAY)
     Route: 065
  4. CARVEDILOL [Suspect]
     Active Substance: CARVEDILOL
     Indication: Product used for unknown indication
     Route: 065

REACTIONS (1)
  - Cough [Unknown]
